FAERS Safety Report 6232319-6 (Version None)
Quarter: 2009Q2

REPORT INFORMATION
  Report Type: 
  Country: None (occurrence: None)
  Receive Date: 20090615
  Receipt Date: 20090615
  Transmission Date: 20091009
  Serious: No
  Sender: FDA-Public Use
  Company Number: None

PATIENT
  Age: 73 Year
  Sex: Male
  Weight: 117.9352 kg

DRUGS (1)
  1. PATANASE [Suspect]
     Indication: RHINORRHOEA
     Dosage: 2 EACH NOSTRIL 2 DAILY
     Dates: start: 20081201

REACTIONS (1)
  - CONSTIPATION [None]
